FAERS Safety Report 20416747 (Version 3)
Quarter: 2022Q2

REPORT INFORMATION
  Report Type: Spontaneous
  Country: JP (occurrence: JP)
  Receive Date: 20220202
  Receipt Date: 20220506
  Transmission Date: 20220721
  Serious: Yes (Other)
  Sender: FDA-Public Use
  Company Number: JP-Accord-252143

PATIENT
  Age: 69 Year
  Sex: Female
  Weight: 47.5 kg

DRUGS (2)
  1. FLUOROURACIL [Suspect]
     Active Substance: FLUOROURACIL
     Indication: Oesophageal squamous cell carcinoma stage III
     Dosage: CUMULATIVE DOSE: 1 CYCLICAL
     Dates: start: 2015, end: 2015
  2. CISPLATIN [Suspect]
     Active Substance: CISPLATIN
     Indication: Oesophageal squamous cell carcinoma stage III
     Dosage: CUMULATIVE DOSE: 1 CYCLICAL
     Dates: start: 2015, end: 2015

REACTIONS (1)
  - Renal impairment [Unknown]

NARRATIVE: CASE EVENT DATE: 20150101
